FAERS Safety Report 23284828 (Version 1)
Quarter: 2023Q4

REPORT INFORMATION
  Report Type: Other
  Country: JP (occurrence: JP)
  Receive Date: 20231211
  Receipt Date: 20231211
  Transmission Date: 20240110
  Serious: Yes (Other)
  Sender: FDA-Public Use
  Company Number: JP-Merck Healthcare KGaA-2023493135

PATIENT
  Age: 55 Year
  Sex: Male

DRUGS (3)
  1. METGLUCO [Suspect]
     Active Substance: METFORMIN HYDROCHLORIDE
     Indication: Diabetes mellitus
     Route: 048
  2. DAPAGLIFLOZIN [Suspect]
     Active Substance: DAPAGLIFLOZIN
     Indication: Diabetes mellitus
     Route: 048
  3. VILDAGLIPTIN [Suspect]
     Active Substance: VILDAGLIPTIN
     Indication: Diabetes mellitus
     Route: 048

REACTIONS (1)
  - Prerenal failure [Recovering/Resolving]
